FAERS Safety Report 15705285 (Version 1)
Quarter: 2018Q4

REPORT INFORMATION
  Report Type: Spontaneous
  Country: US (occurrence: US)
  Receive Date: 20181127
  Receipt Date: 20181127
  Transmission Date: 20190205
  Serious: Yes (Hospitalization, Other)
  Sender: FDA-Public Use
  Company Number: None

PATIENT
  Age: 69 Year
  Sex: Male
  Weight: 68.04 kg

DRUGS (5)
  1. UNKNOWN [Suspect]
     Active Substance: UNSPECIFIED INGREDIENT
  2. LATUDA [Suspect]
     Active Substance: LURASIDONE HYDROCHLORIDE
     Indication: PSYCHOMOTOR HYPERACTIVITY
     Dates: start: 20100205
  3. CLONAZEPAM. [Suspect]
     Active Substance: CLONAZEPAM
  4. LITHIUM. [Suspect]
     Active Substance: LITHIUM
  5. UNKNOWN [Suspect]
     Active Substance: UNSPECIFIED INGREDIENT

REACTIONS (4)
  - Amnesia [None]
  - Drooling [None]
  - Rhinorrhoea [None]
  - Tremor [None]

NARRATIVE: CASE EVENT DATE: 20181015
